FAERS Safety Report 17185888 (Version 1)
Quarter: 2019Q4

REPORT INFORMATION
  Report Type: Spontaneous
  Country: NO (occurrence: NO)
  Receive Date: 20191220
  Receipt Date: 20191220
  Transmission Date: 20200122
  Serious: Yes (Other)
  Sender: FDA-Public Use
  Company Number: NO-US-PROVELL PHARMACEUTICALS LLC-E2B_90073226

PATIENT
  Age: 41 Year
  Sex: Male
  Weight: 75 kg

DRUGS (2)
  1. LEVOTHYROXINE. [Suspect]
     Active Substance: LEVOTHYROXINE
     Indication: HYPOTHYROIDISM
     Dates: start: 20131101, end: 20160301
  2. LEVOTHYROXINE. [Suspect]
     Active Substance: LEVOTHYROXINE
     Dosage: DOSE INCREASED

REACTIONS (8)
  - Musculoskeletal stiffness [Recovered/Resolved]
  - Amnesia [Recovered/Resolved]
  - Drug ineffective [Recovered/Resolved]
  - Fatigue [Recovered/Resolved]
  - Disturbance in attention [Recovered/Resolved]
  - Feeling cold [Recovered/Resolved]
  - Dry eye [Recovered/Resolved]
  - Asthenia [Recovered/Resolved]

NARRATIVE: CASE EVENT DATE: 20131101
